FAERS Safety Report 5038927-2 (Version None)
Quarter: 2006Q2

REPORT INFORMATION
  Report Type: 
  Country: None (occurrence: None)
  Receive Date: 20060629
  Receipt Date: 20060623
  Transmission Date: 20061013
  Serious: Yes (Hospitalization)
  Sender: FDA-Public Use
  Company Number: 2006UW13390

PATIENT
  Age: 44 Year
  Sex: Female

DRUGS (2)
  1. SEROQUEL [Suspect]
     Route: 048
  2. HYPERTENSIVE MEDICATIONS [Concomitant]

REACTIONS (3)
  - CONFUSIONAL STATE [None]
  - FEELING ABNORMAL [None]
  - KETOACIDOSIS [None]
